FAERS Safety Report 4477250-1 (Version None)
Quarter: 2004Q4

REPORT INFORMATION
  Report Type: 
  Country: None (occurrence: None)
  Receive Date: 20041013
  Receipt Date: 20040927
  Transmission Date: 20050328
  Serious: Yes (Death)
  Sender: FDA-Public Use
  Company Number: A02200402666

PATIENT
  Age: 62 Year
  Sex: Male

DRUGS (9)
  1. ZOLPIDEM IREX - (ZOLPIDEM) - TABLET - 10 MG [Suspect]
     Indication: SUICIDE ATTEMPT
     Dosage: 4 BOXES OF 14 TABLETS FOUND EMPTY, ORAL
     Route: 048
     Dates: start: 20040101, end: 20040101
  2. MEPRONIZINE - (MEPROBAMATE/ACEPROMETAZINE) - TABLET - 410 MG [Suspect]
     Indication: SUICIDE ATTEMPT
     Dosage: 1 BOX OF 30 TABLETS FOUND EMPTY ORAL
     Route: 048
     Dates: start: 20040101, end: 20040101
  3. NORDAZ (NORDAZEPAM) [Concomitant]
  4. PROZAC [Concomitant]
  5. TEVETEN [Concomitant]
  6. BI-PRETERAX (PERINDOPRIL/INDAPAMIDE) [Concomitant]
  7. VIOXX [Concomitant]
  8. ACETAMINOPHEN [Concomitant]
  9. ZOLPIDEM IREX (ZOLPIDEM) [Concomitant]

REACTIONS (2)
  - ILL-DEFINED DISORDER [None]
  - INTENTIONAL OVERDOSE [None]
